FAERS Safety Report 24710017 (Version 1)
Quarter: 2024Q4

REPORT INFORMATION
  Report Type: Spontaneous
  Country: GB (occurrence: GB)
  Receive Date: 20241209
  Receipt Date: 20241209
  Transmission Date: 20250115
  Serious: Yes (Disabling)
  Sender: Unknown Manufacturer
  Company Number: GB-MHRA-TPP51848738C5197280YC1732534859553

PATIENT
  Age: 51 Year
  Sex: Male
  Weight: 127 kg

DRUGS (7)
  1. METFORMIN HYDROCHLORIDE [Suspect]
     Active Substance: METFORMIN HYDROCHLORIDE
     Indication: Diabetes mellitus
     Dates: start: 20240317
  2. MOUNJARO [Concomitant]
     Active Substance: TIRZEPATIDE
     Indication: Ill-defined disorder
     Dosage: USE AS DIRECTED
     Dates: start: 20241108
  3. AMLODIPINE [Concomitant]
     Active Substance: AMLODIPINE BESYLATE
     Indication: Ill-defined disorder
     Dosage: TAKE ONE DAILY FOR BLOOD PRESSURE
     Dates: start: 20240317
  4. ATORVASTATIN [Concomitant]
     Active Substance: ATORVASTATIN
     Indication: Ill-defined disorder
     Dosage: TAKE ONE DAILY
     Dates: start: 20240317
  5. BISOPROLOL [Concomitant]
     Active Substance: BISOPROLOL
     Indication: Ill-defined disorder
     Dosage: 1 TABLET EACH MORNING FOR BLOOD PRESSURE
     Dates: start: 20240317
  6. LEVOTHYROXINE [Concomitant]
     Active Substance: LEVOTHYROXINE
     Indication: Ill-defined disorder
     Dosage: TAKE ONE EACH MORNING FOR UNDERACTIVE THYROID G...
     Dates: start: 20240317
  7. RAMIPRIL [Concomitant]
     Active Substance: RAMIPRIL
     Indication: Ill-defined disorder
     Dosage: TAKE ONE DAILY
     Dates: start: 20240317

REACTIONS (1)
  - Vision blurred [Recovered/Resolved]

NARRATIVE: CASE EVENT DATE: 20241113
